FAERS Safety Report 5487503-6 (Version None)
Quarter: 2007Q4

REPORT INFORMATION
  Report Type: 
  Country: None (occurrence: None)
  Receive Date: 20071016
  Receipt Date: 20071005
  Transmission Date: 20080405
  Serious: Yes (Other)
  Sender: FDA-Public Use
  Company Number: GB-PFIZER INC-2007083830

PATIENT
  Age: 84 Year
  Sex: Female
  Weight: 89 kg

DRUGS (4)
  1. DOXAZOSIN MESYLATE [Suspect]
     Indication: HYPERTENSION
     Route: 048
     Dates: start: 20070622, end: 20070815
  2. ALDOMET [Concomitant]
     Indication: HYPERTENSION
     Route: 048
  3. BUMETANIDE [Concomitant]
     Indication: HYPERTENSION
     Route: 048
  4. LOSARTAN POTASSIUM [Concomitant]
     Indication: HYPERTENSION
     Route: 048

REACTIONS (4)
  - CHEST DISCOMFORT [None]
  - PARAESTHESIA [None]
  - PARALYSIS [None]
  - TENDERNESS [None]
